FAERS Safety Report 14870660 (Version 1)
Quarter: 2018Q2

REPORT INFORMATION
  Report Type: Report from Study
  Country: US (occurrence: US)
  Receive Date: 20180509
  Receipt Date: 20180509
  Transmission Date: 20180711
  Serious: Yes (Hospitalization)
  Sender: FDA-Public Use
  Company Number: US-RETROPHIN, INC.-2018RTN00016

PATIENT
  Sex: Female

DRUGS (1)
  1. CHOLIC ACID [Suspect]
     Active Substance: CHOLIC ACID
     Indication: ENZYME ABNORMALITY
     Dosage: 150 MG, AS DIRECTED
     Dates: start: 20170916

REACTIONS (2)
  - Upper respiratory tract infection [Recovered/Resolved]
  - Abdominal distension [Recovered/Resolved]
